FAERS Safety Report 16287361 (Version 1)
Quarter: 2019Q2

REPORT INFORMATION
  Report Type: Report from Study
  Country: US (occurrence: US)
  Receive Date: 20190508
  Receipt Date: 20190508
  Transmission Date: 20190711
  Serious: Yes (Hospitalization, Other)
  Sender: FDA-Public Use
  Company Number: US-MYLANLABS-2019M1042461

PATIENT
  Age: 69 Year
  Sex: Female

DRUGS (11)
  1. LITHIUM CARBONATE CAPSULES [Suspect]
     Active Substance: LITHIUM CARBONATE
     Indication: BIPOLAR DISORDER
     Dosage: 150 MILLIGRAM, QID
     Route: 065
  2. VITAMIN D                          /00107901/ [Concomitant]
     Active Substance: ERGOCALCIFEROL
  3. LITHIUM. [Suspect]
     Active Substance: LITHIUM
     Indication: BIPOLAR DISORDER
     Dosage: 300 MILLIGRAM, QD
  4. GOCOVRI [Suspect]
     Active Substance: AMANTADINE
     Dosage: 274 MILLIGRAM, QD (AT BEDTIME)
     Route: 048
     Dates: start: 20190213, end: 20190221
  5. AMITIZA [Concomitant]
     Active Substance: LUBIPROSTONE
  6. ATORVASTATIN [Concomitant]
     Active Substance: ATORVASTATIN
  7. GOCOVRI [Suspect]
     Active Substance: AMANTADINE
     Indication: DYSKINESIA
     Dosage: 137 MILLIGRAM, QD
     Route: 048
     Dates: start: 20190206, end: 20190212
  8. CARBIDOPA/LEVODOPA DAVUR [Concomitant]
  9. RASAGILINE. [Concomitant]
     Active Substance: RASAGILINE
  10. SERTRALINE [Concomitant]
     Active Substance: SERTRALINE HYDROCHLORIDE
  11. CARBIDOPA/LEVODOPA [Concomitant]
     Active Substance: CARBIDOPA\LEVODOPA

REACTIONS (7)
  - Delusion [Recovered/Resolved]
  - Fall [Recovered/Resolved]
  - Hallucination [Not Recovered/Not Resolved]
  - Dyskinesia [Not Recovered/Not Resolved]
  - Abnormal dreams [Unknown]
  - Skin laceration [Recovered/Resolved]
  - Acute kidney injury [Unknown]

NARRATIVE: CASE EVENT DATE: 20190216
